FAERS Safety Report 6604050-6 (Version None)
Quarter: 2010Q1

REPORT INFORMATION
  Report Type: 
  Country: None (occurrence: None)
  Receive Date: 20100226
  Receipt Date: 20090428
  Transmission Date: 20100710
  Serious: No
  Sender: FDA-Public Use
  Company Number: A0781033A

PATIENT
  Age: 43 Year
  Sex: Female

DRUGS (9)
  1. LAMICTAL CD [Suspect]
     Route: 048
     Dates: start: 20090116, end: 20090117
  2. SEROQUEL [Concomitant]
  3. FOLIC ACID [Concomitant]
  4. MIRAPEX [Concomitant]
  5. CYCLOBENZAPRINE [Concomitant]
  6. LEVOTHYROXINE [Concomitant]
  7. METOPROLOL TARTRATE [Concomitant]
  8. METFORMIN HYDROCHLORIDE [Concomitant]
  9. MAXALT [Concomitant]

REACTIONS (9)
  - GENITAL RASH [None]
  - LYMPHADENOPATHY [None]
  - ORAL DISCOMFORT [None]
  - OROPHARYNGEAL BLISTERING [None]
  - PRURITUS [None]
  - SWOLLEN TONGUE [None]
  - THROAT IRRITATION [None]
  - VULVOVAGINAL PRURITUS [None]
  - WHEEZING [None]
